FAERS Safety Report 4332695-5 (Version None)
Quarter: 2004Q1

REPORT INFORMATION
  Report Type: 
  Country: None (occurrence: None)
  Receive Date: 20040330
  Receipt Date: 20040318
  Transmission Date: 20041129
  Serious: No
  Sender: FDA-Public Use
  Company Number: 2004UW03246

PATIENT
  Age: 71 Year
  Sex: Male
  Weight: 80 kg

DRUGS (5)
  1. CRESTOR [Suspect]
     Dosage: 10 MG DAILY PO
     Route: 048
     Dates: start: 20031101, end: 20040301
  2. ATACAND [Suspect]
     Dosage: 8 MG DAILY PO
     Route: 048
     Dates: start: 20031001
  3. ATACAND [Suspect]
     Dosage: 16 MG DAILY PO
     Route: 048
     Dates: end: 20040301
  4. ATACAND HCT [Suspect]
     Dosage: 32/12.5 MG
  5. ALTACE [Concomitant]

REACTIONS (1)
  - BLOOD PRESSURE INADEQUATELY CONTROLLED [None]
